FAERS Safety Report 8333935-8 (Version None)
Quarter: 2012Q2

REPORT INFORMATION
  Report Type: 
  Country: None (occurrence: None)
  Receive Date: 20120503
  Receipt Date: 20110201
  Transmission Date: 20120825
  Serious: No
  Sender: FDA-Public Use
  Company Number: US-TEVA-2011000518

PATIENT
  Sex: Female
  Weight: 74.91 kg

DRUGS (6)
  1. RAMIPRIL [Concomitant]
     Dates: start: 20110101
  2. NUVIGIL [Suspect]
     Indication: SLEEP APNOEA SYNDROME
     Dosage: 250 MILLIGRAM;
     Route: 048
     Dates: start: 20110101, end: 20110101
  3. SYNTHROID [Concomitant]
     Dates: start: 20090101
  4. VENLAFAXINE [Concomitant]
     Dates: start: 20101201
  5. NUVIGIL [Suspect]
     Dosage: 500 MILLIGRAM;
     Route: 048
     Dates: start: 20110101
  6. TAMOXIFEN CITRATE [Concomitant]
     Dates: start: 20080101

REACTIONS (2)
  - DRUG INEFFECTIVE [None]
  - DRUG PRESCRIBING ERROR [None]
